FAERS Safety Report 15682016 (Version 1)
Quarter: 2018Q4

REPORT INFORMATION
  Report Type: Spontaneous
  Country: US (occurrence: US)
  Receive Date: 20181203
  Receipt Date: 20181203
  Transmission Date: 20190205
  Serious: No
  Sender: FDA-Public Use
  Company Number: US-ASCEND THERAPEUTICS-2059564

PATIENT
  Age: 36 Year
  Sex: Female

DRUGS (5)
  1. LEUPROLIDE ACETATE. [Concomitant]
     Active Substance: LEUPROLIDE ACETATE
  2. GEMFIBROZIL. [Concomitant]
     Active Substance: GEMFIBROZIL
  3. PROGESTERONE. [Concomitant]
     Active Substance: PROGESTERONE
  4. ESTROGEL [Suspect]
     Active Substance: ESTRADIOL
     Indication: HORMONE THERAPY
     Route: 048
  5. EICOSAPENTAENOIC ACID [Concomitant]
     Active Substance: ICOSAPENT

REACTIONS (1)
  - Maternal exposure before pregnancy [None]
